FAERS Safety Report 9361890 (Version 3)
Quarter: 2013Q3

REPORT INFORMATION
  Report Type: Spontaneous
  Country: US (occurrence: US)
  Receive Date: 20130621
  Receipt Date: 20130905
  Transmission Date: 20140515
  Serious: Yes (Death, Hospitalization, Other)
  Sender: FDA-Public Use
  Company Number: US-009507513-2010SP065480

PATIENT
  Sex: Female
  Weight: 63.5 kg

DRUGS (3)
  1. NUVARING [Suspect]
     Indication: CONTRACEPTION
     Dosage: UNK
     Route: 067
     Dates: start: 200812, end: 200901
  2. NUVARING [Suspect]
     Indication: MENORRHAGIA
  3. TYLENOL [Concomitant]
     Indication: PRODUCT USED FOR UNKNOWN INDICATION
     Dosage: 4 TIMES PER DAY AS NEEDED FOR PAIN

REACTIONS (47)
  - Haemorrhage intracranial [Fatal]
  - Supraventricular tachycardia [Unknown]
  - Hypertension [Unknown]
  - Blood disorder [Unknown]
  - Coagulopathy [Unknown]
  - Deep vein thrombosis [Unknown]
  - Mental disorder [Unknown]
  - Thrombocytopenia [Unknown]
  - Anaemia [Unknown]
  - Iron deficiency anaemia [Unknown]
  - Menometrorrhagia [Unknown]
  - Hepatosplenomegaly [Unknown]
  - Pulmonary embolism [Unknown]
  - Pleural effusion [Unknown]
  - Pericardial effusion [Unknown]
  - Anaemia [Unknown]
  - Splenomegaly [Unknown]
  - Blood albumin decreased [Unknown]
  - Pulmonary hypertension [Unknown]
  - Paroxysmal nocturnal haemoglobinuria [Unknown]
  - Carpal tunnel syndrome [Unknown]
  - Sinus disorder [Unknown]
  - Carpal tunnel decompression [Unknown]
  - Sinus operation [Unknown]
  - Small intestinal obstruction [Recovered/Resolved]
  - Splenic vein thrombosis [Unknown]
  - Portal vein thrombosis [Unknown]
  - Mesenteric vein thrombosis [Unknown]
  - Small intestinal obstruction [Unknown]
  - Colitis ischaemic [Unknown]
  - Portal hypertension [Unknown]
  - Ovarian cyst [Unknown]
  - Bacterial vaginosis [Unknown]
  - Varices oesophageal [Unknown]
  - Heparin-induced thrombocytopenia [Unknown]
  - Abdominal abscess [Recovered/Resolved]
  - Liver disorder [Unknown]
  - Ascites [Unknown]
  - Iron overload [Unknown]
  - Abdominal pain [Unknown]
  - Off label use [Unknown]
  - Brain herniation [Fatal]
  - Hepatic failure [Unknown]
  - Thirst [Unknown]
  - Heart rate irregular [Unknown]
  - Menstruation irregular [Unknown]
  - Menstrual disorder [Unknown]
